FAERS Safety Report 13786626 (Version 1)
Quarter: 2017Q3

REPORT INFORMATION
  Report Type: Spontaneous
  Country: US (occurrence: US)
  Receive Date: 20170725
  Receipt Date: 20170725
  Transmission Date: 20171127
  Serious: Yes (Other)
  Sender: FDA-Public Use
  Company Number: None

PATIENT
  Age: 59 Year
  Sex: Female
  Weight: 63 kg

DRUGS (23)
  1. E [Concomitant]
  2. TUMS [Concomitant]
     Active Substance: CALCIUM CARBONATE
  3. LACTULOSE. [Suspect]
     Active Substance: LACTULOSE
     Route: 048
     Dates: start: 20150721, end: 20150725
  4. FAMVIR [Concomitant]
     Active Substance: FAMCICLOVIR
  5. FENTORA [Concomitant]
     Active Substance: FENTANYL CITRATE
  6. HYDROCODONE [Concomitant]
     Active Substance: HYDROCODONE
  7. DEXILANT [Concomitant]
     Active Substance: DEXLANSOPRAZOLE
  8. CLINDAMYCIN. [Concomitant]
     Active Substance: CLINDAMYCIN
  9. SOMA [Concomitant]
     Active Substance: CARISOPRODOL
  10. LEVSIN [Concomitant]
     Active Substance: HYOSCYAMINE SULFATE
  11. ZYRTEC [Concomitant]
     Active Substance: CETIRIZINE HYDROCHLORIDE
  12. BUMEX [Concomitant]
     Active Substance: BUMETANIDE
  13. CLONAZEPAM. [Concomitant]
     Active Substance: CLONAZEPAM
  14. MAGNESIUM [Concomitant]
     Active Substance: MAGNESIUM
  15. SILENOR [Concomitant]
     Active Substance: DOXEPIN HYDROCHLORIDE
  16. RESTASIS [Concomitant]
     Active Substance: CYCLOSPORINE
  17. CARAFATE [Concomitant]
     Active Substance: SUCRALFATE
  18. VITAMIN D [Concomitant]
     Active Substance: CHOLECALCIFEROL
  19. DOXYCYCLINE. [Concomitant]
     Active Substance: DOXYCYCLINE
  20. CALCIUM [Concomitant]
     Active Substance: CALCIUM
  21. SURFAK [Concomitant]
  22. DIFLUCAN [Concomitant]
     Active Substance: FLUCONAZOLE
  23. LUNESTA [Concomitant]
     Active Substance: ESZOPICLONE

REACTIONS (3)
  - Product physical consistency issue [None]
  - Constipation [None]
  - Abdominal distension [None]

NARRATIVE: CASE EVENT DATE: 20170603
